FAERS Safety Report 21972222 (Version 3)
Quarter: 2023Q2

REPORT INFORMATION
  Report Type: Spontaneous
  Country: US (occurrence: US)
  Receive Date: 20230209
  Receipt Date: 20230414
  Transmission Date: 20230721
  Serious: Yes (Hospitalization)
  Sender: FDA-Public Use
  Company Number: US-JNJFOC-20230207942

PATIENT

DRUGS (2)
  1. REMICADE [Suspect]
     Active Substance: INFLIXIMAB
     Indication: Crohn^s disease
     Route: 041
  2. HUMIRA [Suspect]
     Active Substance: ADALIMUMAB
     Indication: Crohn^s disease
     Route: 065

REACTIONS (7)
  - Colectomy [Unknown]
  - Joint swelling [Recovered/Resolved]
  - Vomiting [Recovered/Resolved]
  - Adverse drug reaction [Unknown]
  - Nausea [Recovered/Resolved]
  - Frequent bowel movements [Unknown]
  - Therapy non-responder [Unknown]
